FAERS Safety Report 21551490 (Version 2)
Quarter: 2022Q4

REPORT INFORMATION
  Report Type: Report from Study
  Country: US (occurrence: US)
  Receive Date: 20221103
  Receipt Date: 20221228
  Transmission Date: 20230113
  Serious: Yes (Hospitalization, Disabling)
  Sender: FDA-Public Use
  Company Number: US-JNJFOC-20221057727

PATIENT
  Age: 67 Year
  Sex: Female
  Weight: 107.60 kg

DRUGS (5)
  1. SPRAVATO [Suspect]
     Active Substance: ESKETAMINE
     Indication: Depression
     Dosage: 56 MG, 3 TOTAL DOSES
     Dates: start: 20210407, end: 20210414
  2. SPRAVATO [Suspect]
     Active Substance: ESKETAMINE
     Dosage: 84 MG, 1 TOTAL DOSE
     Dates: start: 20210419, end: 20210419
  3. SPRAVATO [Suspect]
     Active Substance: ESKETAMINE
     Dosage: 56 MG, 4 TOTAL DOSES
     Dates: start: 20210421, end: 20210503
  4. SPRAVATO [Suspect]
     Active Substance: ESKETAMINE
     Dosage: 84 MG, 44 TOTAL DOSES
     Dates: start: 20210517, end: 20221019
  5. SPRAVATO [Suspect]
     Active Substance: ESKETAMINE
     Dosage: 84 MG, MOST RECENT DOSE
     Dates: start: 20221026, end: 20221026

REACTIONS (3)
  - Renal failure [Unknown]
  - Cardiac failure congestive [Unknown]
  - Hypotension [Unknown]

NARRATIVE: CASE EVENT DATE: 20221026
